FAERS Safety Report 12191469 (Version 2)
Quarter: 2016Q2

REPORT INFORMATION
  Report Type: Report from Study
  Country: US (occurrence: US)
  Receive Date: 20160318
  Receipt Date: 20160420
  Transmission Date: 20160815
  Serious: Yes (Hospitalization)
  Sender: FDA-Public Use
  Company Number: US-GILEAD-2016-0204013

PATIENT
  Age: 62 Year
  Sex: Female

DRUGS (18)
  1. AMBRISENTAN [Suspect]
     Active Substance: AMBRISENTAN
     Indication: PULMONARY HYPERTENSION
     Dosage: 10 MG, QD
     Route: 048
     Dates: start: 20091105
  2. ACETAMINOPHEN. [Concomitant]
     Active Substance: ACETAMINOPHEN
  3. SPIRONOLACTONE. [Concomitant]
     Active Substance: SPIRONOLACTONE
  4. DOCUSATE [Concomitant]
     Active Substance: DOCUSATE
  5. CALCIUM + VITAMIN D                /00944201/ [Concomitant]
     Active Substance: CALCIUM CARBONATE\CHOLECALCIFEROL
  6. SILDENAFIL. [Concomitant]
     Active Substance: SILDENAFIL
  7. OXYGEN. [Concomitant]
     Active Substance: OXYGEN
  8. LEVOTHYROXINE. [Concomitant]
     Active Substance: LEVOTHYROXINE
  9. TREPROSTINIL [Concomitant]
     Active Substance: TREPROSTINIL
  10. OXYCODONE [Concomitant]
     Active Substance: OXYCODONE
  11. ESOMEPRAZOLE [Concomitant]
     Active Substance: ESOMEPRAZOLE
  12. PILOCARPINE. [Concomitant]
     Active Substance: PILOCARPINE
  13. VITAMIN E                          /00110501/ [Concomitant]
     Active Substance: TOCOPHEROL
  14. CYCLOBENZAPRINE [Concomitant]
     Active Substance: CYCLOBENZAPRINE
  15. FUROSEMIDE. [Concomitant]
     Active Substance: FUROSEMIDE
  16. ISRADIPINE. [Concomitant]
     Active Substance: ISRADIPINE
  17. PENTOXYFYLLINE [Concomitant]
  18. LANSOPRAZOLE. [Concomitant]
     Active Substance: LANSOPRAZOLE

REACTIONS (1)
  - Dyspnoea [Unknown]
